FAERS Safety Report 5726364-4 (Version None)
Quarter: 2008Q2

REPORT INFORMATION
  Report Type: 
  Country: None (occurrence: None)
  Receive Date: 20080430
  Receipt Date: 20080421
  Transmission Date: 20081010
  Serious: Yes (Other)
  Sender: FDA-Public Use
  Company Number: 2008AP001041

PATIENT
  Age: 44 Year
  Sex: Female

DRUGS (4)
  1. CYCLOSPORINE [Suspect]
  2. TACROLIMUS [Suspect]
  3. PREDNISONE TAB [Concomitant]
  4. MYCOPHENOLATE MOFETIL [Concomitant]

REACTIONS (4)
  - BLOOD CREATININE INCREASED [None]
  - BLOOD LACTATE DEHYDROGENASE INCREASED [None]
  - IMMUNOSUPPRESSANT DRUG LEVEL INCREASED [None]
  - THROMBOTIC MICROANGIOPATHY [None]
